FAERS Safety Report 7003700-2 (Version None)
Quarter: 2010Q3

REPORT INFORMATION
  Report Type: 
  Country: None (occurrence: None)
  Receive Date: 20100917
  Receipt Date: 20100903
  Transmission Date: 20110219
  Serious: Yes (Other)
  Sender: FDA-Public Use
  Company Number: 2010P1000141

PATIENT
  Age: 12 Year
  Sex: Female

DRUGS (2)
  1. IMURAN [Suspect]
     Indication: COLITIS ULCERATIVE
  2. ELESTAT [Concomitant]

REACTIONS (3)
  - CONVULSION [None]
  - REVERSIBLE POSTERIOR LEUKOENCEPHALOPATHY SYNDROME [None]
  - URINARY TRACT INFECTION [None]
